FAERS Safety Report 18061470 (Version 1)
Quarter: 2020Q3

REPORT INFORMATION
  Report Type: Spontaneous
  Country: FR (occurrence: FR)
  Receive Date: 20200723
  Receipt Date: 20200723
  Transmission Date: 20201103
  Serious: Yes (Hospitalization)
  Sender: FDA-Public Use
  Company Number: FR-ROCHE-2647803

PATIENT
  Age: 44 Year
  Sex: Male

DRUGS (2)
  1. VALIUM [Suspect]
     Active Substance: DIAZEPAM
     Indication: INTENTIONAL OVERDOSE
     Route: 048
     Dates: start: 20200617, end: 20200617
  2. THERALENE [Suspect]
     Active Substance: TRIMEPRAZINE
     Indication: INTENTIONAL OVERDOSE
     Route: 048
     Dates: start: 20200617, end: 20200617

REACTIONS (2)
  - Altered state of consciousness [Recovered/Resolved]
  - Poisoning deliberate [Recovered/Resolved]

NARRATIVE: CASE EVENT DATE: 20200617
